FAERS Safety Report 21003015 (Version 1)
Quarter: 2022Q2

REPORT INFORMATION
  Report Type: Spontaneous
  Country: US (occurrence: None)
  Receive Date: 20220623
  Receipt Date: 20220623
  Transmission Date: 20220721
  Serious: No
  Sender: FDA-Public Use
  Company Number: None

PATIENT
  Age: 75 Year
  Sex: Male
  Weight: 77.4 kg

DRUGS (11)
  1. MOLNUPIRAVIR [Suspect]
     Active Substance: MOLNUPIRAVIR
     Indication: COVID-19
     Dosage: FREQUENCY : TWICE A DAY;?
     Route: 048
     Dates: start: 20220614, end: 20220618
  2. PRILOSEC [Concomitant]
     Active Substance: OMEPRAZOLE MAGNESIUM
  3. ATORVASTATIN [Concomitant]
     Active Substance: ATORVASTATIN
  4. CLONAZEPAM [Concomitant]
     Active Substance: CLONAZEPAM
  5. TOPAMAX [Concomitant]
     Active Substance: TOPIRAMATE
  6. FLOMAX [Concomitant]
     Active Substance: TAMSULOSIN HYDROCHLORIDE
  7. MIDODRINE [Concomitant]
     Active Substance: MIDODRINE
  8. CALCIUM [Concomitant]
     Active Substance: CALCIUM
  9. FOLIC ACID [Concomitant]
  10. pysillium husk [Concomitant]
  11. CRANBERRY [Concomitant]
     Active Substance: CRANBERRY

REACTIONS (3)
  - Diarrhoea [None]
  - Abdominal discomfort [None]
  - COVID-19 [None]

NARRATIVE: CASE EVENT DATE: 20220622
